FAERS Safety Report 25104719 (Version 1)
Quarter: 2025Q1

REPORT INFORMATION
  Report Type: Spontaneous
  Country: US (occurrence: US)
  Receive Date: 20250321
  Receipt Date: 20250321
  Transmission Date: 20250408
  Serious: Yes (Hospitalization)
  Sender: INDICUS PHARMA LLC
  Company Number: US-Indicus Pharma-001063

PATIENT
  Age: 32 Year
  Sex: Female

DRUGS (1)
  1. METFORMIN HYDROCHLORIDE [Suspect]
     Active Substance: METFORMIN HYDROCHLORIDE

REACTIONS (6)
  - Hypoglycaemia [Recovered/Resolved]
  - Electrocardiogram QT prolonged [Recovered/Resolved]
  - Blood lactic acid increased [Recovered/Resolved]
  - Intentional overdose [Unknown]
  - Mental status changes [Recovered/Resolved]
  - Toxicity to various agents [Unknown]
